FAERS Safety Report 14966608 (Version 2)
Quarter: 2018Q2

REPORT INFORMATION
  Report Type: Spontaneous
  Country: TW (occurrence: TW)
  Receive Date: 20180604
  Receipt Date: 20180605
  Transmission Date: 20180711
  Serious: Yes (Death, Other)
  Sender: FDA-Public Use
  Company Number: TW-ROCHE-2127955

PATIENT
  Age: 76 Year
  Sex: Female
  Weight: 56 kg

DRUGS (5)
  1. METHYLPREDNISOLONE. [Concomitant]
     Active Substance: METHYLPREDNISOLONE
     Route: 048
     Dates: start: 20150513, end: 20180418
  2. MABTHERA [Suspect]
     Active Substance: RITUXIMAB
     Indication: RHEUMATOID ARTHRITIS
     Route: 042
     Dates: start: 20140820, end: 20180408
  3. HYDROXYCHLOROQUINE SULFATE. [Concomitant]
     Active Substance: HYDROXYCHLOROQUINE SULFATE
     Route: 048
     Dates: start: 20140702, end: 20180418
  4. AMBROXOL [Concomitant]
     Active Substance: AMBROXOL
     Route: 048
     Dates: start: 20180110, end: 20180418
  5. ETORICOXIB [Concomitant]
     Active Substance: ETORICOXIB
     Route: 048
     Dates: start: 20160303, end: 20180418

REACTIONS (6)
  - Acute pulmonary oedema [Fatal]
  - Atrial fibrillation [Unknown]
  - Acute kidney injury [Unknown]
  - Cardiac failure acute [Fatal]
  - Upper gastrointestinal haemorrhage [Recovering/Resolving]
  - Pneumonia [Unknown]

NARRATIVE: CASE EVENT DATE: 201805
